FAERS Safety Report 8837331 (Version 2)
Quarter: 2015Q3

REPORT INFORMATION
  Report Type: Report from Study
  Country: US (occurrence: US)
  Receive Date: 20121011
  Receipt Date: 20150807
  Transmission Date: 20151125
  Serious: Yes (Death)
  Sender: FDA-Public Use
  Company Number: US-ROCHE-1118450

PATIENT
  Sex: Male

DRUGS (3)
  1. EMLA [Concomitant]
     Active Substance: LIDOCAINE\PRILOCAINE
  2. NUTROPIN [Suspect]
     Active Substance: SOMATROPIN
     Indication: AZOTAEMIA
     Route: 058
  3. NUTROPIN [Suspect]
     Active Substance: SOMATROPIN
     Indication: CHRONIC KIDNEY DISEASE
     Dosage: MG/KG
     Route: 058

REACTIONS (1)
  - Death [Fatal]
